FAERS Safety Report 9172827 (Version 1)
Quarter: 2012Q4

REPORT INFORMATION
  Report Type: 
  Country: TH (occurrence: TH)
  Receive Date: 20120911
  Receipt Date: 20120911
  Transmission Date: 20130627
  Serious: Yes (Death)
  Sender: FDA-Public Use
  Company Number: PHHY2010TH094561

PATIENT
  Age: 43 None
  Sex: Male

DRUGS (1)
  1. GLIVEC [Suspect]
     Dates: start: 20101027

REACTIONS (1)
  - Death [Fatal]
